FAERS Safety Report 4701660-8 (Version None)
Quarter: 2005Q2

REPORT INFORMATION
  Report Type: 
  Country: None (occurrence: None)
  Receive Date: 20050628
  Receipt Date: 20050621
  Transmission Date: 20051028
  Serious: Yes (Other)
  Sender: FDA-Public Use
  Company Number: ES-ABBOTT-05P-144-0303706-00

PATIENT
  Age: 17 Year
  Sex: Male

DRUGS (1)
  1. ERYTHROMYCIN [Suspect]
     Indication: ANTIBACTERIAL PROPHYLAXIS
     Dosage: NOT REPORTED

REACTIONS (2)
  - DRUG TOXICITY [None]
  - VANISHING BILE DUCT SYNDROME [None]
